FAERS Safety Report 25773180 (Version 1)
Quarter: 2025Q3

REPORT INFORMATION
  Report Type: Spontaneous
  Country: US (occurrence: None)
  Receive Date: 20250908
  Receipt Date: 20250908
  Transmission Date: 20251020
  Serious: No
  Sender: INCYTE
  Company Number: US-INCYTE CORPORATION-2025IN009346

PATIENT
  Age: 67 Year

DRUGS (1)
  1. JAKAFI [Suspect]
     Active Substance: RUXOLITINIB
     Indication: Prolymphocytic leukaemia
     Dosage: 10 MILLIGRAM, BID (WITH A FULL GLASS OF WATER AND WITHOUT FOOD)

REACTIONS (3)
  - Off label use [Unknown]
  - Oropharyngeal pain [Not Recovered/Not Resolved]
  - Hiccups [Unknown]
